FAERS Safety Report 5406727-7 (Version None)
Quarter: 2007Q3

REPORT INFORMATION
  Report Type: 
  Country: None (occurrence: None)
  Receive Date: 20070802
  Receipt Date: 20070719
  Transmission Date: 20080115
  Serious: Yes (Hospitalization)
  Sender: FDA-Public Use
  Company Number: CIP07001460

PATIENT
  Age: 75 Year
  Sex: Female

DRUGS (3)
  1. RISEDRONATE SODIUM [Suspect]
     Indication: OSTEOPOROSIS
     Dosage: 2.5 MG DAILY, ORAL
     Route: 048
     Dates: start: 20050701, end: 20070501
  2. DEPAS (ETIZOLAM) [Concomitant]
  3. LOXONIN /00890701/ (LOXOPROFEN) [Concomitant]

REACTIONS (1)
  - OSTEOMYELITIS [None]
